FAERS Safety Report 20086234 (Version 1)
Quarter: 2021Q4

REPORT INFORMATION
  Report Type: Spontaneous
  Country: US (occurrence: US)
  Receive Date: 20211118
  Receipt Date: 20211118
  Transmission Date: 20220304
  Serious: No
  Sender: FDA-Public Use
  Company Number: US-SA-SAC20211116000956

PATIENT
  Age: 55 Year
  Sex: Female

DRUGS (6)
  1. DUPIXENT [Suspect]
     Active Substance: DUPILUMAB
     Indication: Dermatitis atopic
     Dosage: 300 MG, QOW
     Route: 058
     Dates: start: 20190928
  2. ADVAIR HFA [Concomitant]
     Active Substance: FLUTICASONE PROPIONATE\SALMETEROL XINAFOATE
  3. FLONASE [Concomitant]
     Active Substance: FLUTICASONE PROPIONATE
  4. LISINOPRIL [Concomitant]
     Active Substance: LISINOPRIL
  5. SYNVISC [Concomitant]
     Active Substance: HYLAN G-F 20
  6. ZYRTEC [Concomitant]
     Active Substance: CETIRIZINE HYDROCHLORIDE

REACTIONS (1)
  - Rash [Unknown]

NARRATIVE: CASE EVENT DATE: 20211026
